FAERS Safety Report 10515987 (Version 2)
Quarter: 2014Q4

REPORT INFORMATION
  Report Type: Spontaneous
  Country: US (occurrence: US)
  Receive Date: 20141014
  Receipt Date: 20141017
  Transmission Date: 20150528
  Serious: No
  Sender: FDA-Public Use
  Company Number: US-009507513-1410USA006553

PATIENT
  Sex: Male

DRUGS (1)
  1. JANUMET [Suspect]
     Active Substance: METFORMIN HYDROCHLORIDE\SITAGLIPTIN PHOSPHATE
     Dosage: 50MCG/1000MCG/ONE TABLET, TWICE DAILY
     Route: 048

REACTIONS (3)
  - Overdose [Unknown]
  - Off label use [Unknown]
  - No adverse event [Unknown]
